FAERS Safety Report 6601049-0 (Version None)
Quarter: 2010Q1

REPORT INFORMATION
  Report Type: 
  Country: None (occurrence: None)
  Receive Date: 20100225
  Receipt Date: 20100217
  Transmission Date: 20100710
  Serious: Yes (Congenital Anomaly, Other)
  Sender: FDA-Public Use
  Company Number: FR-JNJFOC-20091105534

PATIENT
  Sex: Female

DRUGS (20)
  1. GYNO DAKTARIN [Suspect]
     Route: 065
  2. GYNO DAKTARIN [Suspect]
     Indication: DRUG USE FOR UNKNOWN INDICATION
     Route: 065
  3. GENTALLINE [Suspect]
     Indication: DRUG USE FOR UNKNOWN INDICATION
  4. FURADANTINE [Suspect]
     Indication: DRUG USE FOR UNKNOWN INDICATION
  5. AMYCOR [Suspect]
     Indication: DRUG USE FOR UNKNOWN INDICATION
  6. COLIBACILLINUM [Concomitant]
  7. COLIBACILLINUM [Concomitant]
  8. CRANBERRY EXTRACT [Concomitant]
  9. PULSATILLA [Concomitant]
  10. PHOSPHOROUS [Concomitant]
  11. THUYA [Concomitant]
  12. OPIUM [Concomitant]
  13. PYROGENIUM [Concomitant]
  14. PYROGENIUM [Concomitant]
  15. GYNDELTA [Concomitant]
  16. PLACENTA [Concomitant]
  17. PLACENTA [Concomitant]
  18. ARNICA EXTRACT [Concomitant]
  19. HAMAMELIS [Concomitant]
  20. IPECAC TAB [Concomitant]

REACTIONS (6)
  - ABORTION INDUCED [None]
  - AMNIOTIC CAVITY DISORDER [None]
  - AMNIOTIC FLUID VOLUME DECREASED [None]
  - DRUG EXPOSURE DURING PREGNANCY [None]
  - HAEMATOMA [None]
  - METRORRHAGIA [None]
